FAERS Safety Report 10769908 (Version 2)
Quarter: 2015Q1

REPORT INFORMATION
  Report Type: Spontaneous
  Country: US (occurrence: US)
  Receive Date: 20150206
  Receipt Date: 20150213
  Transmission Date: 20150721
  Serious: No
  Sender: FDA-Public Use
  Company Number: US-009507513-1502USA002664

PATIENT
  Age: 55 Year
  Sex: Male

DRUGS (1)
  1. BELSOMRA [Suspect]
     Active Substance: SUVOREXANT
     Indication: INSOMNIA
     Dosage: 10 MG / 1 DAILY AT BED TIME
     Route: 048
     Dates: start: 20150204, end: 20150204

REACTIONS (11)
  - Fatigue [Recovering/Resolving]
  - Nightmare [Recovering/Resolving]
  - Abnormal dreams [Unknown]
  - Insomnia [Recovering/Resolving]
  - Therapeutic response unexpected [Unknown]
  - Psychomotor hyperactivity [Unknown]
  - Sleep paralysis [Recovering/Resolving]
  - Heart rate increased [Not Recovered/Not Resolved]
  - Hallucination [Recovering/Resolving]
  - Tremor [Not Recovered/Not Resolved]
  - Anxiety [Recovering/Resolving]

NARRATIVE: CASE EVENT DATE: 20150204
